FAERS Safety Report 15757932 (Version 2)
Quarter: 2019Q1

REPORT INFORMATION
  Report Type: Report from Study
  Country: DE (occurrence: DE)
  Receive Date: 20181225
  Receipt Date: 20190201
  Transmission Date: 20190417
  Serious: Yes (Death, Hospitalization, Other)
  Sender: FDA-Public Use
  Company Number: DE-ACCORD-097538

PATIENT
  Age: 63 Year
  Sex: Male
  Weight: 66 kg

DRUGS (9)
  1. MACROGOL/MACROGOL STEARATE [Concomitant]
     Dosage: BTL
     Route: 065
  2. CAPROS [Concomitant]
     Route: 048
  3. AMPHO MORONAL [Concomitant]
     Active Substance: AMPHOTERICIN B
     Route: 065
  4. SALBUTAMOL [Concomitant]
     Active Substance: ALBUTEROL
     Route: 055
  5. DOCETAXEL. [Suspect]
     Active Substance: DOCETAXEL
     Indication: NON-SMALL CELL LUNG CANCER
     Dosage: 130 MG, QD
     Route: 065
     Dates: start: 20171228
  6. ORAMORPH [Concomitant]
     Active Substance: MORPHINE SULFATE
     Route: 065
  7. ENOXAPARIN-NATRIUM [Concomitant]
     Route: 058
  8. BIBF 1120 [Suspect]
     Active Substance: NINTEDANIB
     Indication: NON-SMALL CELL LUNG CANCER
     Dosage: 200 MG, QD
     Route: 048
     Dates: start: 20171229
  9. PREDNISOLONE. [Concomitant]
     Active Substance: PREDNISOLONE
     Route: 065

REACTIONS (2)
  - Non-small cell lung cancer [Fatal]
  - General physical health deterioration [Recovered/Resolved]

NARRATIVE: CASE EVENT DATE: 20180104
